FAERS Safety Report 7829477-6 (Version None)
Quarter: 2011Q4

REPORT INFORMATION
  Report Type: 
  Country: None (occurrence: None)
  Receive Date: 20111020
  Receipt Date: 20110915
  Transmission Date: 20120403
  Serious: Yes (Hospitalization, Disabling, Other)
  Sender: FDA-Public Use
  Company Number: PL-ROCHE-GNE322753

PATIENT
  Age: 75 Year
  Sex: Female

DRUGS (2)
  1. ACTIVASE [Suspect]
     Indication: ISCHAEMIC STROKE
     Route: 042
     Dates: start: 20080806, end: 20080806
  2. ACTIVASE [Suspect]

REACTIONS (15)
  - URINARY TRACT INFECTION [None]
  - PSEUDOBULBAR PALSY [None]
  - HEMIPLEGIA [None]
  - PLATELET COUNT INCREASED [None]
  - HEMIANOPIA [None]
  - ILL-DEFINED DISORDER [None]
  - HEMIPARESIS [None]
  - GAZE PALSY [None]
  - BLOOD PRESSURE INCREASED [None]
  - RESPIRATORY TRACT INFECTION [None]
  - CEREBROVASCULAR ACCIDENT [None]
  - HAEMORRHAGE [None]
  - LOSS OF CONSCIOUSNESS [None]
  - DYSPHAGIA [None]
  - APHASIA [None]
